FAERS Safety Report 5839673-5 (Version None)
Quarter: 2008Q3

REPORT INFORMATION
  Report Type: 
  Country: None (occurrence: None)
  Receive Date: 20080811
  Receipt Date: 20080801
  Transmission Date: 20090109
  Serious: Yes (Hospitalization)
  Sender: FDA-Public Use
  Company Number: PHHY2008JP11738

PATIENT
  Age: 76 Year
  Sex: Female
  Weight: 45 kg

DRUGS (10)
  1. COMTAN [Suspect]
     Indication: PARKINSON'S DISEASE
     Dosage: 100 MG DAILY
     Route: 048
  2. COMTAN [Suspect]
     Indication: DRUG EFFECT DECREASED
     Dosage: 100 MG, BID
     Route: 048
     Dates: start: 20080602, end: 20080606
  3. LEVODOPA [Concomitant]
     Route: 048
  4. DOPAMINE HCL [Concomitant]
  5. CARBIDOPA + LEVODOPA [Concomitant]
     Indication: PARKINSON'S DISEASE
     Dosage: 300 MG, UNK
     Route: 048
     Dates: start: 20040901
  6. PRAMIPEXOLE DIHYDROCHLORIDE [Concomitant]
     Indication: PARKINSON'S DISEASE
     Dosage: 1.0 MG, UNK
     Route: 048
  7. DEPAS [Concomitant]
     Dosage: 0.5 MG, UNK
     Route: 048
  8. PAXIL [Concomitant]
     Dosage: 40 MG, UNK
     Route: 048
  9. FAMOSTAGINE [Concomitant]
     Indication: STOMACH DISCOMFORT
     Dosage: 20 MG, UNK
     Route: 048
  10. ALOSENN [Concomitant]
     Indication: CONSTIPATION
     Dosage: 1.0 G, UNK
     Route: 048

REACTIONS (3)
  - HALLUCINATION [None]
  - HUMERUS FRACTURE [None]
  - PAIN IN EXTREMITY [None]
